FAERS Safety Report 8247073-6 (Version None)
Quarter: 2012Q1

REPORT INFORMATION
  Report Type: 
  Country: None (occurrence: None)
  Receive Date: 20120329
  Receipt Date: 20120329
  Transmission Date: 20120608
  Serious: No
  Sender: FDA-Public Use
  Company Number: None

PATIENT
  Sex: Female
  Weight: 64.4108 kg

DRUGS (1)
  1. AMLODIPINE [Suspect]
     Indication: HYPERTENSION
     Dosage: 5MG ONE DAILY ORAL MANY YEARS
     Route: 048

REACTIONS (3)
  - NAUSEA [None]
  - HEADACHE [None]
  - ABDOMINAL DISCOMFORT [None]
